FAERS Safety Report 4457811-6 (Version None)
Quarter: 2004Q3

REPORT INFORMATION
  Report Type: 
  Country: None (occurrence: None)
  Receive Date: 20040922
  Receipt Date: 20040701
  Transmission Date: 20050211
  Serious: Yes (Hospitalization)
  Sender: FDA-Public Use
  Company Number: 209088

PATIENT
  Age: 43 Year
  Sex: Female
  Weight: 77 kg

DRUGS (3)
  1. TRASTUZUMAB (CODE NOT BROKEN) PWDR + SOLVENT, INFUSION SOLN, 440MG [Suspect]
     Indication: BREAST CANCER
     Dosage: SEE IMAGE
     Route: 042
     Dates: start: 20030724, end: 20030724
  2. TRASTUZUMAB (CODE NOT BROKEN) PWDR + SOLVENT, INFUSION SOLN, 440MG [Suspect]
     Indication: BREAST CANCER
     Dosage: SEE IMAGE
     Route: 042
     Dates: start: 20030814
  3. HYDROCORTISONE [Concomitant]

REACTIONS (2)
  - ERYSIPELAS [None]
  - NEUTROPHIL COUNT INCREASED [None]
